FAERS Safety Report 7961749-7 (Version None)
Quarter: 2011Q4

REPORT INFORMATION
  Report Type: 
  Country: None (occurrence: None)
  Receive Date: 20111202
  Receipt Date: 20111202
  Transmission Date: 20120403
  Serious: Yes (Life-Threatening)
  Sender: FDA-Public Use
  Company Number: None

PATIENT
  Sex: Female
  Weight: 68.9467 kg

DRUGS (1)
  1. CYCLOBENZAPRINE [Suspect]
     Indication: BACK PAIN
     Dosage: 1 TAB DAILY IF NECESSARY 1 TAB DAILY
     Dates: start: 20111001

REACTIONS (1)
  - BLOOD PRESSURE FLUCTUATION [None]
